FAERS Safety Report 4914989-5 (Version None)
Quarter: 2006Q1

REPORT INFORMATION
  Report Type: 
  Country: None (occurrence: None)
  Receive Date: 20060215
  Receipt Date: 20060215
  Transmission Date: 20060701
  Serious: Yes (Hospitalization)
  Sender: FDA-Public Use
  Company Number: None

PATIENT
  Sex: Male
  Weight: 90.7194 kg

DRUGS (7)
  1. INSULIN [Suspect]
     Indication: DIABETES MELLITUS
     Dosage: PUMP
  2. PRECOSE [Concomitant]
  3. ALLEGRA [Concomitant]
  4. VERELAN [Concomitant]
  5. VASOTEC RPD [Concomitant]
  6. ZOCOR [Concomitant]
  7. ACTOS [Concomitant]

REACTIONS (3)
  - CONFUSIONAL STATE [None]
  - DYSARTHRIA [None]
  - HYPOGLYCAEMIA [None]
